FAERS Safety Report 5957253-8 (Version None)
Quarter: 2008Q4

REPORT INFORMATION
  Report Type: 
  Country: None (occurrence: None)
  Receive Date: 20081118
  Receipt Date: 20081111
  Transmission Date: 20090506
  Serious: Yes (Hospitalization)
  Sender: FDA-Public Use
  Company Number: GB-PFIZER INC-2008095740

PATIENT
  Age: 32 Year
  Sex: Female
  Weight: 99.7 kg

DRUGS (1)
  1. CHANTIX [Suspect]
     Indication: SMOKING CESSATION THERAPY
     Route: 048
     Dates: start: 20081006, end: 20081022

REACTIONS (4)
  - ERYTHEMA [None]
  - PSORIASIS [None]
  - RASH ERYTHEMATOUS [None]
  - SKIN EXFOLIATION [None]
